FAERS Safety Report 12891216 (Version 4)
Quarter: 2017Q1

REPORT INFORMATION
  Report Type: Report from Study
  Country: GB (occurrence: GB)
  Receive Date: 20161027
  Receipt Date: 20170127
  Transmission Date: 20170428
  Serious: Yes (Other)
  Sender: FDA-Public Use
  Company Number: PHFR2016GB008508

PATIENT
  Sex: Female

DRUGS (1)
  1. SANDOSTATIN LAR DEPOT [Suspect]
     Active Substance: OCTREOTIDE ACETATE
     Indication: CARCINOID SYNDROME
     Dosage: 20 MG, QMO
     Route: 030
     Dates: start: 2012

REACTIONS (10)
  - Renal failure [Not Recovered/Not Resolved]
  - Malaise [Unknown]
  - Hypoproteinaemia [Unknown]
  - Injection site pain [Unknown]
  - Neoplasm malignant [Unknown]
  - Malignant neoplasm progression [Unknown]
  - Injection site mass [Unknown]
  - Terminal state [Unknown]
  - Carcinoid crisis [Unknown]
  - Asthenia [Unknown]
